FAERS Safety Report 23114368 (Version 2)
Quarter: 2024Q1

REPORT INFORMATION
  Report Type: Other
  Country: CA (occurrence: CA)
  Receive Date: 20231027
  Receipt Date: 20240124
  Transmission Date: 20240410
  Serious: Yes (Other)
  Sender: FDA-Public Use
  Company Number: CA-APOTEX-2023AP015790

PATIENT
  Age: 62 Year
  Sex: Female

DRUGS (9)
  1. MONTELUKAST [Suspect]
     Active Substance: MONTELUKAST SODIUM
     Indication: Chronic spontaneous urticaria
     Dosage: 10 MILLIGRAM, QD
     Route: 048
  2. CYCLOSPORINE [Suspect]
     Active Substance: CYCLOSPORINE
     Indication: Chronic spontaneous urticaria
     Dosage: 100 MILLIGRAM, BID
     Route: 048
  3. CYCLOSPORINE [Suspect]
     Active Substance: CYCLOSPORINE
     Dosage: 200 MILLIGRAM, QD
     Route: 048
  4. BENADRYL [Concomitant]
     Active Substance: DIPHENHYDRAMINE HYDROCHLORIDE
     Indication: Chronic spontaneous urticaria
     Dosage: 1 DOSAGE FORM
     Route: 048
  5. BILASTINE [Concomitant]
     Active Substance: BILASTINE
     Indication: Chronic spontaneous urticaria
     Dosage: 2 DOSAGE FORM, BID
     Route: 048
  6. BILASTINE [Concomitant]
     Active Substance: BILASTINE
     Dosage: 4 DOSAGE FORM, QD
     Route: 048
  7. PEPCID [Concomitant]
     Active Substance: FAMOTIDINE
     Indication: Product used for unknown indication
     Dosage: UNK
     Route: 065
  8. PREDNISONE [Concomitant]
     Active Substance: PREDNISONE
     Indication: Chronic spontaneous urticaria
     Dosage: UNK
     Route: 065
  9. PREDNISONE [Concomitant]
     Active Substance: PREDNISONE
     Dosage: UNK
     Route: 048

REACTIONS (16)
  - Discomfort [Unknown]
  - Exercise tolerance decreased [Unknown]
  - Eye oedema [Unknown]
  - Face oedema [Unknown]
  - Feeling abnormal [Unknown]
  - Hypokinesia [Unknown]
  - Lip oedema [Unknown]
  - Pain [Unknown]
  - Product use in unapproved indication [Unknown]
  - Quality of life decreased [Unknown]
  - Blood potassium increased [Unknown]
  - Suicidal ideation [Unknown]
  - Pruritus [Unknown]
  - Anxiety [Unknown]
  - Urticaria [Unknown]
  - Therapeutic product effect incomplete [Unknown]
